FAERS Safety Report 16090725 (Version 6)
Quarter: 2019Q2

REPORT INFORMATION
  Report Type: Report from Study
  Country: US (occurrence: US)
  Receive Date: 20190319
  Receipt Date: 20190529
  Transmission Date: 20190711
  Serious: Yes (Death, Hospitalization)
  Sender: FDA-Public Use
  Company Number: US-ACTELION-A-NJ2019-187623

PATIENT
  Age: 62 Year
  Sex: Female
  Weight: 120.18 kg

DRUGS (4)
  1. UPTRAVI [Suspect]
     Active Substance: SELEXIPAG
     Indication: PULMONARY HYPERTENSION
     Dosage: 200 MCG, BID
     Route: 048
  2. ELIQUIS [Concomitant]
     Active Substance: APIXABAN
  3. ADEMPAS [Concomitant]
     Active Substance: RIOCIGUAT
  4. OPSUMIT [Suspect]
     Active Substance: MACITENTAN
     Indication: PULMONARY HYPERTENSION
     Dosage: UNK
     Route: 048

REACTIONS (7)
  - Respiratory failure [Fatal]
  - Myocardial infarction [Unknown]
  - Pulseless electrical activity [Fatal]
  - Loss of consciousness [Unknown]
  - Pulmonary arterial hypertension [Fatal]
  - Cerebrovascular accident [Unknown]
  - Disease progression [Fatal]

NARRATIVE: CASE EVENT DATE: 2019
